FAERS Safety Report 6640398-7 (Version None)
Quarter: 2010Q1

REPORT INFORMATION
  Report Type: 
  Country: None (occurrence: None)
  Receive Date: 20100318
  Receipt Date: 20100311
  Transmission Date: 20100710
  Serious: Yes (Hospitalization)
  Sender: FDA-Public Use
  Company Number: US-GILEAD-2010-0027174

PATIENT
  Sex: Female
  Weight: 65.83 kg

DRUGS (13)
  1. LETAIRIS [Suspect]
     Indication: PULMONARY ARTERIAL HYPERTENSION
     Route: 048
     Dates: start: 20090922
  2. COUMADIN [Concomitant]
  3. LASIX [Concomitant]
  4. COZAAR [Concomitant]
  5. METOPROLOL TARTRATE [Concomitant]
  6. NORVASC [Concomitant]
  7. LORAZEPAM [Concomitant]
  8. KLONOPIN [Concomitant]
  9. DIPYRIDAMOLE [Concomitant]
  10. OXYBUTYNIN [Concomitant]
  11. CRESTOR [Concomitant]
  12. PLAVIX [Concomitant]
  13. POTASSIUM CHLORIDE [Concomitant]

REACTIONS (1)
  - COMPLICATION OF DEVICE INSERTION [None]
